FAERS Safety Report 4818791-4 (Version None)
Quarter: 2005Q4

REPORT INFORMATION
  Report Type: 
  Country: None (occurrence: None)
  Receive Date: 20051101
  Receipt Date: 20051019
  Transmission Date: 20060501
  Serious: Yes (Hospitalization)
  Sender: FDA-Public Use
  Company Number: 2005144860

PATIENT
  Sex: Female
  Weight: 113.3993 kg

DRUGS (5)
  1. BEXTRA [Suspect]
     Indication: MONARTHRITIS
     Dosage: 10 MG (10 MG, 1 IN 1 D), ORAL
     Route: 048
  2. HYZAAR (HYDROCHLORIAZIDE, LOSARTAN POTASSIUM) [Concomitant]
  3. VIOXX [Concomitant]
  4. CELEBRE (CELECOXIB) [Concomitant]
  5. AVAPRO [Concomitant]

REACTIONS (5)
  - BLOOD CHOLESTEROL INCREASED [None]
  - CORONARY ARTERY OCCLUSION [None]
  - GALLBLADDER OPERATION [None]
  - GASTROINTESTINAL PAIN [None]
  - MIXED INCONTINENCE [None]
